FAERS Safety Report 4918662-9 (Version None)
Quarter: 2006Q1

REPORT INFORMATION
  Report Type: 
  Country: None (occurrence: None)
  Receive Date: 20060222
  Receipt Date: 20051031
  Transmission Date: 20060701
  Serious: Yes (Other)
  Sender: FDA-Public Use
  Company Number: 2005AP06167

PATIENT
  Age: 28403 Day
  Sex: Female
  Weight: 52 kg

DRUGS (8)
  1. IRESSA [Suspect]
     Indication: LUNG ADENOCARCINOMA
     Route: 048
     Dates: start: 20051006, end: 20051024
  2. IRESSA [Suspect]
     Route: 048
     Dates: start: 20051115, end: 20051203
  3. LIPITOR [Concomitant]
     Indication: HYPERTENSION
     Route: 048
  4. DAONIL [Concomitant]
     Indication: DIABETES MELLITUS
     Route: 048
  5. RADIOTHERAPY [Concomitant]
     Dosage: 60 GY
     Dates: start: 20010211, end: 20010404
  6. PACLITAXEL [Concomitant]
     Dosage: ADMINISTERED 9 TIMES
     Dates: start: 20031113, end: 20040323
  7. PACLITAXEL [Concomitant]
     Dosage: ADMINISTERED 4 TIMES
     Dates: start: 20050108, end: 20050329
  8. CARBOPLATIN [Concomitant]
     Dosage: ADMINISTERED 9 TIMES
     Dates: start: 20031113, end: 20040323

REACTIONS (2)
  - ECZEMA [None]
  - HEPATIC FUNCTION ABNORMAL [None]
